FAERS Safety Report 11113171 (Version 7)
Quarter: 2017Q3

REPORT INFORMATION
  Report Type: Report from Study
  Country: FR (occurrence: FR)
  Receive Date: 20150514
  Receipt Date: 20170712
  Transmission Date: 20171127
  Serious: Yes (Life-Threatening, Hospitalization)
  Sender: FDA-Public Use
  Company Number: PHHY2015FR057687

PATIENT
  Age: 45 Year
  Sex: Female

DRUGS (8)
  1. AFINITOR [Suspect]
     Active Substance: EVEROLIMUS
     Indication: BREAST CANCER
     Dosage: 5 MG, QD
     Route: 048
     Dates: start: 20150213, end: 20150220
  2. AFINITOR [Suspect]
     Active Substance: EVEROLIMUS
     Dosage: 5 MG, QD
     Route: 048
     Dates: start: 20150316, end: 20150322
  3. METFORMIN [Concomitant]
     Active Substance: METFORMIN HYDROCHLORIDE
     Indication: TYPE 2 DIABETES MELLITUS
     Route: 065
  4. EUCREAS [Concomitant]
     Active Substance: METFORMIN HYDROCHLORIDE\VILDAGLIPTIN
     Indication: TYPE 2 DIABETES MELLITUS
     Route: 065
  5. AROMASINE [Suspect]
     Active Substance: EXEMESTANE
     Indication: PRODUCT USED FOR UNKNOWN INDICATION
     Dosage: 25 MG, UNK
     Route: 065
     Dates: start: 20150213, end: 20150422
  6. AFINITOR [Suspect]
     Active Substance: EVEROLIMUS
     Dosage: 10 MG
     Route: 048
     Dates: start: 20150416, end: 20150421
  7. AFINITOR [Suspect]
     Active Substance: EVEROLIMUS
     Dosage: 10 MG, QD
     Route: 048
     Dates: start: 20150323, end: 20150411
  8. AFINITOR [Suspect]
     Active Substance: EVEROLIMUS
     Dosage: 2.5 MG, QD
     Route: 048
     Dates: start: 20150302, end: 20150315

REACTIONS (12)
  - Tachypnoea [Unknown]
  - Interstitial lung disease [Recovered/Resolved]
  - Cough [Recovering/Resolving]
  - Acute kidney injury [Unknown]
  - Diabetic ketoacidosis [Not Recovered/Not Resolved]
  - General physical health deterioration [Unknown]
  - Vomiting [Unknown]
  - Headache [Recovered/Resolved]
  - Dehydration [Unknown]
  - Polyuria [Unknown]
  - Dyspnoea [Not Recovered/Not Resolved]
  - Hyperglycaemia [Recovered/Resolved]

NARRATIVE: CASE EVENT DATE: 20150411
